FAERS Safety Report 5480314-7 (Version None)
Quarter: 2007Q3

REPORT INFORMATION
  Report Type: 
  Country: None (occurrence: None)
  Receive Date: 20070913
  Receipt Date: 20070501
  Transmission Date: 20080115
  Serious: Yes (Other)
  Sender: FDA-Public Use
  Company Number: PHEH2007US05677

PATIENT
  Age: 59 Year
  Sex: Male

DRUGS (4)
  1. DIOVAN [Suspect]
     Indication: HYPERTENSION
     Dosage: 80 MG, QD, ORAL
     Route: 048
     Dates: start: 20070201, end: 20070301
  2. WELLBUTRIN [Concomitant]
  3. CONCERTA (METHYLPREDNIDATE HYDROCHLORIDE) [Concomitant]
  4. PRILOSEC [Concomitant]

REACTIONS (4)
  - ASTHENIA [None]
  - HYPOTENSION [None]
  - MUSCLE SPASMS [None]
  - MYALGIA [None]
